FAERS Safety Report 8191309-7 (Version None)
Quarter: 2012Q1

REPORT INFORMATION
  Report Type: 
  Country: None (occurrence: None)
  Receive Date: 20120307
  Receipt Date: 20120302
  Transmission Date: 20120608
  Serious: Yes (Life-Threatening)
  Sender: FDA-Public Use
  Company Number: JP-PFIZER INC-2011254286

PATIENT
  Age: 63 Year
  Sex: Male
  Weight: 68.6 kg

DRUGS (7)
  1. REBAMIPIDE [Concomitant]
     Indication: GASTRIC ULCER
     Dosage: 300 MG/DAY
     Route: 048
     Dates: start: 20110623, end: 20110703
  2. TEMSIROLIMUS [Suspect]
     Indication: RENAL CELL CARCINOMA
     Dosage: 25 MG, WEEKLY
     Route: 042
     Dates: start: 20110616
  3. LOXOPROFEN [Concomitant]
     Indication: GASTRIC ULCER
     Dosage: 60 MG, AS NEEDED
     Dates: start: 20110627
  4. RESTAMIN [Concomitant]
     Indication: PROPHYLAXIS
     Dosage: 30 MG, 1X/DAY
     Route: 048
  5. GASMOTIN [Concomitant]
     Indication: GASTRIC ULCER
     Dosage: 15 MG/DAY
     Route: 048
     Dates: start: 20110623, end: 20110703
  6. RABEPRAZOLE SODIUM [Concomitant]
     Indication: GASTRIC ULCER
     Dosage: 1.0 MG, 1X/DAY
     Route: 048
     Dates: start: 20110623, end: 20110703
  7. MINOTOWA [Concomitant]
     Indication: OSTEONECROSIS OF JAW
     Dosage: 200 MG/DAY
     Route: 048
     Dates: start: 20110701

REACTIONS (1)
  - HAEMOPTYSIS [None]
